FAERS Safety Report 23988152 (Version 2)
Quarter: 2024Q3

REPORT INFORMATION
  Report Type: Spontaneous
  Country: JP (occurrence: JP)
  Receive Date: 20240619
  Receipt Date: 20240715
  Transmission Date: 20241017
  Serious: Yes (Hospitalization, Other)
  Sender: Unknown Manufacturer
  Company Number: JP-MTPC-MTPC2024-0012483

PATIENT
  Age: 54 Year
  Sex: Female

DRUGS (2)
  1. EDARAVONE [Suspect]
     Active Substance: EDARAVONE
     Indication: Amyotrophic lateral sclerosis
     Dosage: 105 MILLIGRAM, QD
     Route: 048
     Dates: start: 202307
  2. EDARAVONE [Suspect]
     Active Substance: EDARAVONE
     Indication: Amyotrophic lateral sclerosis
     Dosage: 105 MILLIGRAM, QD
     Route: 048
     Dates: start: 202307

REACTIONS (2)
  - Gastrostomy [Unknown]
  - Adverse event [Unknown]
